FAERS Safety Report 4453043-6 (Version None)
Quarter: 2004Q3

REPORT INFORMATION
  Report Type: 
  Country: None (occurrence: None)
  Receive Date: 20040916
  Receipt Date: 20040916
  Transmission Date: 20050211
  Serious: No
  Sender: FDA-Public Use
  Company Number: None

PATIENT
  Age: 9 Year
  Sex: Female
  Weight: 24.4942 kg

DRUGS (2)
  1. ZOLOFT [Suspect]
     Indication: ATTENTION DEFICIT/HYPERACTIVITY DISORDER
     Dosage: 50 MG EVERY AM ORAL
     Route: 048
     Dates: start: 20040410, end: 20040915
  2. ZOLOFT [Suspect]
     Indication: DEPRESSION
     Dosage: 50 MG EVERY AM ORAL
     Route: 048
     Dates: start: 20040410, end: 20040915

REACTIONS (10)
  - ABNORMAL BEHAVIOUR [None]
  - AGGRESSION [None]
  - ANGER [None]
  - BELLIGERENCE [None]
  - CRYING [None]
  - EDUCATIONAL PROBLEM [None]
  - FEELING ABNORMAL [None]
  - FEELING JITTERY [None]
  - HOSTILITY [None]
  - IMPULSIVE BEHAVIOUR [None]
